FAERS Safety Report 8412307-1 (Version None)
Quarter: 2012Q2

REPORT INFORMATION
  Report Type: 
  Country: None (occurrence: None)
  Receive Date: 20120605
  Receipt Date: 20120525
  Transmission Date: 20120825
  Serious: No
  Sender: FDA-Public Use
  Company Number: US-BAYER-2012-053447

PATIENT
  Age: 58 Year
  Sex: Female
  Weight: 59 kg

DRUGS (4)
  1. ALEVE (CAPLET) [Suspect]
     Indication: BACK PAIN
     Dosage: 1 DF, UNK
     Route: 048
     Dates: start: 20120524, end: 20120525
  2. CALCIUM W/MAGNESIUM/VITAMIN D [Concomitant]
  3. MULTI-VITAMIN [Concomitant]
  4. VITAMIN D [Concomitant]

REACTIONS (1)
  - BACK PAIN [None]
